FAERS Safety Report 6296269-1 (Version None)
Quarter: 2009Q3

REPORT INFORMATION
  Report Type: 
  Country: None (occurrence: None)
  Receive Date: 20090804
  Receipt Date: 20090724
  Transmission Date: 20100115
  Serious: Yes (Other)
  Sender: FDA-Public Use
  Company Number: US-AVENTIS-200916491US

PATIENT
  Sex: Female

DRUGS (6)
  1. LOVENOX [Suspect]
     Dosage: DOSE: UNK
  2. COUMADIN [Concomitant]
     Dosage: DOSE: UNK
  3. FISH OIL [Concomitant]
     Dosage: DOSE: UNK
  4. ALENDRONATE SODIUM [Concomitant]
     Dosage: DOSE: UNK
  5. SIMVASTATIN [Concomitant]
     Dosage: DOSE: UNK
  6. CALCIUM WITH VITAMIN D             /01233101/ [Concomitant]
     Dosage: DOSE: UNK

REACTIONS (1)
  - SEPSIS [None]
